FAERS Safety Report 20569496 (Version 3)
Quarter: 2023Q1

REPORT INFORMATION
  Report Type: Report from Study
  Country: CA (occurrence: CA)
  Receive Date: 20220309
  Receipt Date: 20230307
  Transmission Date: 20230417
  Serious: Yes (Other)
  Sender: FDA-Public Use
  Company Number: CA-BEH-2022142698

PATIENT
  Age: 12 Year
  Sex: Female
  Weight: 54.5 kg

DRUGS (3)
  1. BERINERT [Suspect]
     Active Substance: HUMAN C1-ESTERASE INHIBITOR
     Indication: Hereditary angioedema
     Dosage: 2000 INTERNATIONAL UNIT, BIW
     Route: 058
     Dates: start: 20220223
  2. BERINERT [Suspect]
     Active Substance: HUMAN C1-ESTERASE INHIBITOR
     Indication: Prophylaxis
     Dosage: 2000 INTERNATIONAL UNIT, BIW
     Route: 058
     Dates: start: 20220223, end: 202205
  3. CYKLOKAPRON [Concomitant]
     Active Substance: TRANEXAMIC ACID

REACTIONS (7)
  - Injection site pain [Unknown]
  - No adverse event [Unknown]
  - Underdose [Unknown]
  - Neurogenic shock [Unknown]
  - Drug ineffective [Unknown]
  - No adverse event [Unknown]
  - Therapy cessation [Unknown]

NARRATIVE: CASE EVENT DATE: 20220223
